FAERS Safety Report 7247632-3 (Version None)
Quarter: 2011Q1

REPORT INFORMATION
  Report Type: 
  Country: None (occurrence: None)
  Receive Date: 20110127
  Receipt Date: 20110119
  Transmission Date: 20110831
  Serious: Yes (Hospitalization, Other)
  Sender: FDA-Public Use
  Company Number: CN-NOVOPROD-319382

PATIENT
  Age: 55 Year
  Sex: Male

DRUGS (2)
  1. NOVOLIN R [Suspect]
     Indication: TYPE 2 DIABETES MELLITUS
     Dosage: 300 U, SINGLE
     Route: 042
     Dates: start: 20070226, end: 20070226
  2. PUERARIN [Concomitant]
     Indication: CARDIOVASCULAR DISORDER
     Dosage: UNK

REACTIONS (4)
  - HYPOGLYCAEMIC COMA [None]
  - VASCULAR INJURY [None]
  - INCORRECT ROUTE OF DRUG ADMINISTRATION [None]
  - RENAL IMPAIRMENT [None]
